FAERS Safety Report 10261456 (Version 1)
Quarter: 2013Q4

REPORT INFORMATION
  Report Type: Spontaneous
  Country: US (occurrence: None)
  Receive Date: 20121005
  Receipt Date: 20121005
  Transmission Date: 20140711
  Serious: Yes (Death)
  Sender: FDA-Public Use
  Company Number: None

PATIENT
  Age: 86 Year
  Sex: Male

DRUGS (2)
  1. TICAGRELOR [Suspect]
  2. ASPIRIN [Suspect]

REACTIONS (6)
  - Escherichia test positive [None]
  - Drug hypersensitivity [None]
  - Leukocytosis [None]
  - Blood urea increased [None]
  - Asthenia [None]
  - Weight decreased [None]
